FAERS Safety Report 20902072 (Version 3)
Quarter: 2023Q2

REPORT INFORMATION
  Report Type: Report from Study
  Country: AT (occurrence: AT)
  Receive Date: 20220601
  Receipt Date: 20230414
  Transmission Date: 20230721
  Serious: Yes (Other)
  Sender: FDA-Public Use
  Company Number: AT-ABBVIE-22K-009-4409038-00

PATIENT
  Age: 68 Year
  Sex: Female

DRUGS (12)
  1. VENETOCLAX [Suspect]
     Active Substance: VENETOCLAX
     Indication: Myelodysplastic syndrome
     Dosage: DAYS 1 - 14 OF EACH 28-DAY CYCLE
     Route: 048
     Dates: start: 20220328
  2. PANTOPRAZOLE SODIUM [Concomitant]
     Active Substance: PANTOPRAZOLE SODIUM
     Indication: Gastric ulcer
     Route: 048
     Dates: start: 1998
  3. EUTHYROX [Concomitant]
     Active Substance: LEVOTHYROXINE SODIUM
     Indication: Blood thyroid stimulating hormone increased
     Route: 048
     Dates: start: 2021
  4. CHOLECALCIFEROL [Concomitant]
     Active Substance: CHOLECALCIFEROL
     Indication: Vitamin D deficiency
     Route: 048
     Dates: start: 2019
  5. SERTRALINE HYDROCHLORIDE [Concomitant]
     Active Substance: SERTRALINE HYDROCHLORIDE
     Indication: Depression
     Route: 048
     Dates: start: 1995
  6. VALSARTAN/HCT SAN [Concomitant]
     Indication: Hypertension
     Dosage: 160/12.5 MG
     Route: 048
     Dates: start: 2019
  7. ALLOPURINOL ARI [Concomitant]
     Indication: Hyperuricaemia
     Route: 048
     Dates: start: 2021
  8. NOVALGIN [Concomitant]
     Indication: Pain
     Dosage: TIME INTERVAL: AS NECESSARY
     Route: 048
     Dates: start: 202111
  9. AMPHOMORONAL LTBL [Concomitant]
     Indication: Antifungal prophylaxis
     Route: 061
     Dates: start: 202202
  10. DEXPANTHENOL 5% ORAL RINSE [Concomitant]
     Indication: Infection prophylaxis
     Dosage: 1 ORAL RINSE
     Route: 061
     Dates: start: 202202
  11. LIDAPRIM FTBL FTE (TRIMETHOPRIM/SULFAMETROL) [Concomitant]
     Indication: Infection prophylaxis
     Dosage: 160/800 MG
     Route: 048
     Dates: start: 20220328
  12. AZACITIDINE [Suspect]
     Active Substance: AZACITIDINE
     Indication: Myelodysplastic syndrome
     Dosage: 7 DAYS WITHIN THE FIRST 9 CALENDAR DAYS OF EACH 28-DAY CYCLE
     Route: 058
     Dates: start: 20220328

REACTIONS (1)
  - Staphylococcal sepsis [Recovered/Resolved]

NARRATIVE: CASE EVENT DATE: 20220519
